FAERS Safety Report 18437876 (Version 3)
Quarter: 2021Q1

REPORT INFORMATION
  Report Type: Spontaneous
  Country: JP (occurrence: JP)
  Receive Date: 20201028
  Receipt Date: 20210329
  Transmission Date: 20210419
  Serious: Yes (Death)
  Sender: FDA-Public Use
  Company Number: JP-DSJP-DSJ-2020-130997

PATIENT
  Age: 56 Year
  Sex: Female
  Weight: 52 kg

DRUGS (2)
  1. ENHERTU [Suspect]
     Active Substance: FAM-TRASTUZUMAB DERUXTECAN-NXKI
     Indication: INVASIVE DUCTAL BREAST CARCINOMA
     Dosage: 278 MG, ONCE EVERY 3 WK 2020/7/2,7/30,8/20
     Route: 041
     Dates: start: 20200702, end: 20200820
  2. ENHERTU [Suspect]
     Active Substance: FAM-TRASTUZUMAB DERUXTECAN-NXKI
     Indication: HER2 POSITIVE BREAST CANCER
     Dosage: 280 MG, ONCE EVERY 3 WK, 2020/6/11
     Route: 041
     Dates: start: 20200611, end: 20200611

REACTIONS (1)
  - Venous haemorrhage [Fatal]

NARRATIVE: CASE EVENT DATE: 20200827
